FAERS Safety Report 10747687 (Version 1)
Quarter: 2015Q1

REPORT INFORMATION
  Report Type: Spontaneous
  Country: US (occurrence: None)
  Receive Date: 20150128
  Receipt Date: 20150128
  Transmission Date: 20150721
  Serious: Yes (Hospitalization)
  Sender: FDA-Public Use
  Company Number: None

PATIENT
  Age: 96 Year
  Sex: Female
  Weight: 54.43 kg

DRUGS (2)
  1. RANEXA [Suspect]
     Active Substance: RANOLAZINE
     Dosage: 1000 MG, TABS, TWICE DAY
     Dates: start: 20141021, end: 20141120
  2. RANEXA [Suspect]
     Active Substance: RANOLAZINE
     Dosage: 500 MG, TABS, TWICE DAY
     Dates: start: 20141122, end: 20141210

REACTIONS (6)
  - Headache [None]
  - Nausea [None]
  - Ageusia [None]
  - Constipation [None]
  - Dizziness [None]
  - Anosmia [None]
